FAERS Safety Report 10510028 (Version 1)
Quarter: 2014Q4

REPORT INFORMATION
  Report Type: Spontaneous
  Country: US (occurrence: None)
  Receive Date: 20141009
  Receipt Date: 20141009
  Transmission Date: 20150528
  Serious: No
  Sender: FDA-Public Use
  Company Number: None

PATIENT
  Age: 68 Year
  Sex: Female
  Weight: 53.52 kg

DRUGS (6)
  1. PROBIOTICS [Concomitant]
     Active Substance: PROBIOTICS NOS
  2. LEVOTHYROXINE [Suspect]
     Active Substance: LEVOTHYROXINE
     Indication: BACTERIAL INFECTION
     Dosage: 500 MG ? 1 PILL 1X/DAY FOR 10 DAYS TAKEN MONTH
     Dates: start: 20140908, end: 20140910
  3. NON-STEROIDAL NEBULIZER [Concomitant]
  4. ZOLOFT [Concomitant]
     Active Substance: SERTRALINE HYDROCHLORIDE
  5. VITAMIN D3 (3000 IU/ DAY) [Concomitant]
  6. MULTI VITAMIN [Concomitant]
     Active Substance: VITAMINS

REACTIONS (3)
  - Initial insomnia [None]
  - Viral upper respiratory tract infection [None]
  - Anxiety [None]

NARRATIVE: CASE EVENT DATE: 20140908
